FAERS Safety Report 12560322 (Version 1)
Quarter: 2016Q3

REPORT INFORMATION
  Report Type: Spontaneous
  Country: US (occurrence: None)
  Receive Date: 20160714
  Receipt Date: 20160714
  Transmission Date: 20161109
  Serious: Yes (Hospitalization)
  Sender: FDA-Public Use
  Company Number: None

PATIENT
  Age: 26 Year
  Sex: Female
  Weight: 68.04 kg

DRUGS (1)
  1. AMPICILLIN [Suspect]
     Active Substance: AMPICILLIN

REACTIONS (5)
  - Placental infarction [None]
  - Influenza like illness [None]
  - Exposure during pregnancy [None]
  - Listeriosis [None]
  - Hypersensitivity [None]

NARRATIVE: CASE EVENT DATE: 20160624
